FAERS Safety Report 23746908 (Version 1)
Quarter: 2024Q2

REPORT INFORMATION
  Report Type: Spontaneous
  Country: US (occurrence: None)
  Receive Date: 20240415
  Receipt Date: 20240415
  Transmission Date: 20240716
  Serious: Yes (Life-Threatening, Hospitalization, Disabling, Other)
  Sender: FDA-Public Use
  Company Number: None

PATIENT
  Age: 26 Year
  Sex: Male
  Weight: 72 kg

DRUGS (1)
  1. .DELTA.8-TETRAHYDROCANNABINOL\HERBALS [Suspect]
     Active Substance: .DELTA.8-TETRAHYDROCANNABINOL\HERBALS
     Indication: Anxiety
     Dates: start: 20220531, end: 20220601

REACTIONS (5)
  - Psychotic disorder [None]
  - Hallucination, auditory [None]
  - Paranoia [None]
  - Anxiety [None]
  - Suspected product contamination [None]

NARRATIVE: CASE EVENT DATE: 20220601
